FAERS Safety Report 9553898 (Version 2)
Quarter: 2014Q2

REPORT INFORMATION
  Report Type: Spontaneous
  Country: US (occurrence: US)
  Receive Date: 20130925
  Receipt Date: 20140508
  Transmission Date: 20141212
  Serious: Yes (Hospitalization)
  Sender: FDA-Public Use
  Company Number: US-BAYER-2013-116033

PATIENT
  Age: 21 Year
  Sex: Female

DRUGS (9)
  1. YAZ [Suspect]
     Dosage: UNK
     Dates: start: 20080710, end: 20100729
  2. GIANVI [Suspect]
     Dosage: UNK
     Dates: start: 20100729, end: 20110914
  3. DONNATAL [Concomitant]
  4. COLACE [Concomitant]
  5. ALBUTEROL [Concomitant]
  6. THEOPHYLLINE [Concomitant]
  7. BENADRYL [Concomitant]
  8. ZAFIRLUKAST [Concomitant]
  9. DIPHENHYDRAMINE [Concomitant]

REACTIONS (8)
  - Deep vein thrombosis [None]
  - Pulmonary embolism [None]
  - Injury [None]
  - Emotional distress [None]
  - Depression [None]
  - Fear of death [None]
  - Nervousness [None]
  - Pain [None]
